FAERS Safety Report 22138614 (Version 1)
Quarter: 2023Q1

REPORT INFORMATION
  Report Type: Report from Study
  Country: IN (occurrence: IN)
  Receive Date: 20230326
  Receipt Date: 20230326
  Transmission Date: 20230418
  Serious: Yes (Other)
  Sender: FDA-Public Use
  Company Number: IN-002147023-NVSC2023IN066162

PATIENT
  Age: 75 Year
  Sex: Female

DRUGS (1)
  1. RIBOCICLIB [Suspect]
     Active Substance: RIBOCICLIB
     Indication: Breast cancer metastatic
     Dosage: 600 MG, QD
     Route: 048
     Dates: start: 20220421

REACTIONS (7)
  - Pericardial effusion [Unknown]
  - White blood cell count decreased [Unknown]
  - Hypertension [Unknown]
  - Platelet count decreased [Unknown]
  - Pleural disorder [Unknown]
  - Pleural effusion [Unknown]
  - Weight increased [Unknown]

NARRATIVE: CASE EVENT DATE: 20220520
